FAERS Safety Report 19769856 (Version 1)
Quarter: 2021Q3

REPORT INFORMATION
  Report Type: Spontaneous
  Country: US (occurrence: US)
  Receive Date: 20210831
  Receipt Date: 20210831
  Transmission Date: 20211014
  Serious: Yes (Other)
  Sender: FDA-Public Use
  Company Number: US-CURIUM-200100114

PATIENT
  Age: 35 Year
  Sex: Female

DRUGS (2)
  1. VIOXX [Concomitant]
     Active Substance: ROFECOXIB
  2. SODIUM IODIDE I 131 [Suspect]
     Active Substance: SODIUM IODIDE I-131
     Dosage: NUMBER OF SEPARATE DOSAGES: 1
     Route: 048
     Dates: start: 20011015, end: 20011015

REACTIONS (2)
  - Daydreaming [Unknown]
  - Unresponsive to stimuli [Unknown]
